FAERS Safety Report 17938734 (Version 1)
Quarter: 2020Q2

REPORT INFORMATION
  Report Type: Spontaneous
  Country: US (occurrence: US)
  Receive Date: 20200624
  Receipt Date: 20200624
  Transmission Date: 20200714
  Serious: No
  Sender: FDA-Public Use
  Company Number: US-JACOBUS PHARMACEUTICAL COMPANY, INC.-2086622

PATIENT
  Age: 59 Year
  Sex: Female

DRUGS (17)
  1. RUZURGI [Suspect]
     Active Substance: AMIFAMPRIDINE
     Indication: MYASTHENIC SYNDROME
     Route: 048
     Dates: start: 20200104
  2. PRIVIGEN [Suspect]
     Active Substance: HUMAN IMMUNOGLOBULIN G
  3. CALCIUM/VITAMIN D [Concomitant]
     Active Substance: CALCIUM\VITAMIN D
  4. LOSARTAN. [Concomitant]
     Active Substance: LOSARTAN
  5. COQ10 [Concomitant]
     Active Substance: UBIDECARENONE
  6. MYRBETRIQ [Concomitant]
     Active Substance: MIRABEGRON
  7. SSOLUMEDROL [Concomitant]
  8. BENADRYL [Concomitant]
     Active Substance: DIPHENHYDRAMINE HYDROCHLORIDE
  9. PRILOSEC [Concomitant]
     Active Substance: OMEPRAZOLE MAGNESIUM
  10. BACLOFEN. [Concomitant]
     Active Substance: BACLOFEN
  11. AMITIZA [Concomitant]
     Active Substance: LUBIPROSTONE
  12. LEXAPRO [Concomitant]
     Active Substance: ESCITALOPRAM OXALATE
  13. PROAIR HFA [Concomitant]
     Active Substance: ALBUTEROL SULFATE
  14. TRILIPIX [Concomitant]
     Active Substance: FENOFIBRIC ACID
  15. FLOVENT DISKUS [Concomitant]
     Active Substance: FLUTICASONE PROPIONATE
  16. DOMPERIDONE [Concomitant]
     Active Substance: DOMPERIDONE
  17. DIAZEPAM. [Concomitant]
     Active Substance: DIAZEPAM

REACTIONS (3)
  - Muscle spasms [Recovered/Resolved]
  - Urticaria [Recovered/Resolved]
  - Pruritus [Recovered/Resolved]

NARRATIVE: CASE EVENT DATE: 20200428
